FAERS Safety Report 11653488 (Version 6)
Quarter: 2017Q4

REPORT INFORMATION
  Report Type: Spontaneous
  Country: BR (occurrence: BR)
  Receive Date: 20151022
  Receipt Date: 20171023
  Transmission Date: 20180320
  Serious: Yes (Other)
  Sender: FDA-Public Use
  Company Number: BR-ABBVIE-14P-020-1290440-00

PATIENT
  Age: 60 Year
  Sex: Male
  Weight: 83 kg

DRUGS (16)
  1. DEPAKOTE ER [Suspect]
     Active Substance: DIVALPROEX SODIUM
     Indication: EPILEPSY
     Dosage: DAILY DOSE:1000MG;IN THE MORNING/ AT NIGHT
     Route: 048
     Dates: end: 2013
  2. DEPAKOTE ER [Suspect]
     Active Substance: DIVALPROEX SODIUM
     Dosage: MORNING/NIGHT
     Route: 048
  3. LAMITOR [Suspect]
     Active Substance: LAMOTRIGINE
     Indication: EPILEPSY
     Dosage: MORNING/ NIGHT
     Route: 048
  4. RIVOTRIL [Concomitant]
     Active Substance: CLONAZEPAM
     Indication: SLEEP DISORDER
     Dosage: DAILY DOSE: 1 TABLET; MORNING/NIGHT; WHEN PRESENTS SLEEPING PROBLEMS
     Route: 048
     Dates: start: 2012
  5. DEPAKOTE ER [Suspect]
     Active Substance: DIVALPROEX SODIUM
     Dosage: POSSIBLY A HIGH DOSE
     Route: 048
  6. DEPAKOTE ER [Suspect]
     Active Substance: DIVALPROEX SODIUM
     Route: 048
  7. LAMITOR [Suspect]
     Active Substance: LAMOTRIGINE
     Indication: SEIZURE
     Route: 048
  8. LAMITOR [Suspect]
     Active Substance: LAMOTRIGINE
     Route: 048
  9. DEPAKOTE ER [Suspect]
     Active Substance: DIVALPROEX SODIUM
     Route: 048
  10. DEPAKOTE ER [Suspect]
     Active Substance: DIVALPROEX SODIUM
     Dosage: MORNING/NIGHT
     Route: 048
  11. DEPAKOTE ER [Suspect]
     Active Substance: DIVALPROEX SODIUM
     Dosage: MORNING
     Route: 048
  12. LAMITOR [Suspect]
     Active Substance: LAMOTRIGINE
     Indication: NEUROCYSTICERCOSIS
     Route: 048
  13. DEPAKOTE ER [Suspect]
     Active Substance: DIVALPROEX SODIUM
     Indication: NEUROCYSTICERCOSIS
     Route: 048
     Dates: start: 1994, end: 2015
  14. DEPAKOTE ER [Suspect]
     Active Substance: DIVALPROEX SODIUM
     Route: 048
  15. DEPAKOTE ER [Suspect]
     Active Substance: DIVALPROEX SODIUM
     Indication: SEIZURE
     Route: 048
     Dates: end: 2015
  16. LAMITOR [Suspect]
     Active Substance: LAMOTRIGINE
     Route: 048

REACTIONS (27)
  - Device failure [Recovering/Resolving]
  - Dental implantation [Not Recovered/Not Resolved]
  - Bone loss [Unknown]
  - Device failure [Not Recovered/Not Resolved]
  - Muscular weakness [Recovering/Resolving]
  - Dysgraphia [Recovering/Resolving]
  - Hypoaesthesia [Recovering/Resolving]
  - Bone graft [Recovered/Resolved]
  - Limb discomfort [Recovered/Resolved]
  - Dental implantation [Recovered/Resolved]
  - Seizure [Unknown]
  - Hypoaesthesia [Recovered/Resolved]
  - Bone loss [Unknown]
  - Bone loss [Not Recovered/Not Resolved]
  - Nausea [Unknown]
  - Taeniasis [Recovering/Resolving]
  - Feeling abnormal [Recovering/Resolving]
  - Dental restoration failure [Unknown]
  - Dental implantation [Recovered/Resolved]
  - Ischaemia [Recovering/Resolving]
  - Ischaemia [Recovered/Resolved]
  - Monoplegia [Recovered/Resolved]
  - Drug dispensing error [Unknown]
  - Product use issue [Unknown]
  - Bone disorder [Not Recovered/Not Resolved]
  - Nervous system disorder [Unknown]
  - Gait disturbance [Recovering/Resolving]

NARRATIVE: CASE EVENT DATE: 2011
